FAERS Safety Report 19051365 (Version 3)
Quarter: 2024Q3

REPORT INFORMATION
  Report Type: Report from Study
  Country: DE (occurrence: DE)
  Receive Date: 20210324
  Receipt Date: 20240720
  Transmission Date: 20241017
  Serious: Yes (Other)
  Sender: AUROBINDO
  Company Number: DE-INDIVIOR EUROPE LIMITED-INDV-128590-2021

PATIENT
  Age: 44 Year
  Sex: Male

DRUGS (4)
  1. BUPRENORPHINE [Interacting]
     Active Substance: BUPRENORPHINE
     Indication: Product used for unknown indication
     Dosage: UNK
     Route: 065
  2. MIRTAZAPINE [Suspect]
     Active Substance: MIRTAZAPINE
     Indication: Product used for unknown indication
     Dosage: UNK
     Route: 065
  3. QUETIAPINE [Interacting]
     Active Substance: QUETIAPINE
     Indication: Product used for unknown indication
     Dosage: UNK
     Route: 065
  4. LORAZEPAM [Interacting]
     Active Substance: LORAZEPAM
     Indication: Product used for unknown indication
     Dosage: UNK
     Route: 065

REACTIONS (10)
  - Dysarthria [Unknown]
  - Bradyphrenia [Unknown]
  - Miosis [Unknown]
  - Abnormal behaviour [Unknown]
  - Emotional distress [Unknown]
  - Drug interaction [Unknown]
  - Drug dependence [Unknown]
  - Substance abuse [Unknown]
  - Emotional poverty [Unknown]
  - Lethargy [Unknown]
